FAERS Safety Report 7509332-1 (Version None)
Quarter: 2011Q2

REPORT INFORMATION
  Report Type: 
  Country: None (occurrence: None)
  Receive Date: 20110527
  Receipt Date: 20110521
  Transmission Date: 20111010
  Serious: Yes (Life-Threatening, Hospitalization, Other)
  Sender: FDA-Public Use
  Company Number: PHHY2011US44079

PATIENT
  Sex: Female

DRUGS (2)
  1. HYDROCHLOROTHIAZIDE [Concomitant]
  2. GLEEVEC [Suspect]
     Dosage: 400 MG, QD

REACTIONS (9)
  - FEELING ABNORMAL [None]
  - MYALGIA [None]
  - PNEUMONIA [None]
  - DYSPNOEA [None]
  - LOSS OF CONSCIOUSNESS [None]
  - FALL [None]
  - FLUID RETENTION [None]
  - COORDINATION ABNORMAL [None]
  - CONFUSIONAL STATE [None]
